FAERS Safety Report 7507720-0 (Version None)
Quarter: 2011Q2

REPORT INFORMATION
  Report Type: 
  Country: None (occurrence: None)
  Receive Date: 20110527
  Receipt Date: 20110520
  Transmission Date: 20111010
  Serious: No
  Sender: FDA-Public Use
  Company Number: US-BIOGENIDEC-2011BI007350

PATIENT
  Age: 46 Year
  Sex: Female

DRUGS (1)
  1. TYSABRI [Suspect]
     Indication: MULTIPLE SCLEROSIS
     Route: 042
     Dates: start: 20100430

REACTIONS (6)
  - HYPOAESTHESIA ORAL [None]
  - HERPES ZOSTER [None]
  - VERTIGO [None]
  - AGEUSIA [None]
  - WEIGHT DECREASED [None]
  - RASH [None]
